FAERS Safety Report 11238594 (Version 1)
Quarter: 2015Q3

REPORT INFORMATION
  Report Type: Report from Study
  Country: DE (occurrence: DE)
  Receive Date: 20150706
  Receipt Date: 20150706
  Transmission Date: 20151125
  Serious: Yes (Hospitalization)
  Sender: FDA-Public Use
  Company Number: DE-AMGEN-DEUNI2015065384

PATIENT
  Age: 59 Year
  Sex: Female
  Weight: 86 kg

DRUGS (1)
  1. ETANERCEPT [Suspect]
     Active Substance: ETANERCEPT
     Indication: PRODUCT USED FOR UNKNOWN INDICATION
     Dosage: 50 UNK, UNK
     Route: 065
     Dates: start: 20120202, end: 20140504

REACTIONS (3)
  - Psoriasis [Recovered/Resolved]
  - Condition aggravated [Recovered/Resolved]
  - Psoriatic arthropathy [Recovered/Resolved]

NARRATIVE: CASE EVENT DATE: 20140505
